FAERS Safety Report 5988652-6 (Version None)
Quarter: 2008Q4

REPORT INFORMATION
  Report Type: 
  Country: None (occurrence: None)
  Receive Date: 20081208
  Receipt Date: 20081208
  Transmission Date: 20090506
  Serious: No
  Sender: FDA-Public Use
  Company Number: None

PATIENT
  Age: 80 Year
  Sex: Male

DRUGS (1)
  1. FENTANYL-100 [Suspect]
     Dosage: 100 MCG PATCH APPLIED TO THE SKIN EVERY 3 DAYS
     Route: 062

REACTIONS (4)
  - INADEQUATE ANALGESIA [None]
  - NAUSEA [None]
  - PAIN [None]
  - PAIN IN EXTREMITY [None]
